FAERS Safety Report 9015651 (Version 1)
Quarter: 2013Q1

REPORT INFORMATION
  Report Type: Spontaneous
  Country: AR (occurrence: None)
  Receive Date: 20130102
  Receipt Date: 20130102
  Transmission Date: 20140127
  Serious: Yes (Disabling)
  Sender: FDA-Public Use
  Company Number: 2012P1067851

PATIENT
  Sex: 0

DRUGS (5)
  1. ISONIAZID [Suspect]
     Indication: TUBERCULOSIS
     Dosage: 5 TO 8 MG/KG
  2. RIFAMPIN [Suspect]
     Indication: TUBERCULOSIS
  3. PYRAZINAMIDE [Suspect]
     Indication: TUBERCULOSIS
     Dosage: 15 TO 25 MG/KG
  4. ETHAMBUTOL [Suspect]
     Indication: TUBERCULOSIS
     Dosage: 15 TO 25 MG/KG
  5. STREPTOMYCIN [Suspect]
     Indication: TUBERCULOSIS

REACTIONS (1)
  - Blindness [None]
